FAERS Safety Report 10213782 (Version 1)
Quarter: 2014Q2

REPORT INFORMATION
  Report Type: Spontaneous
  Country: CN (occurrence: CN)
  Receive Date: 20140603
  Receipt Date: 20140603
  Transmission Date: 20141212
  Serious: Yes (Other)
  Sender: FDA-Public Use
  Company Number: CN-ASTRAZENECA-2014SE37016

PATIENT
  Age: 539 Day
  Sex: Male
  Weight: 10 kg

DRUGS (7)
  1. BUDESONIDE [Suspect]
     Indication: INFECTION
     Route: 055
     Dates: start: 20130824, end: 20130826
  2. CEFOXITIN [Suspect]
     Indication: INFECTION
     Route: 041
     Dates: start: 20130824, end: 20130826
  3. SALBUTAMOL SULFATE [Suspect]
     Indication: BRONCHOSPASM
     Route: 055
     Dates: start: 20130824, end: 20130826
  4. IPRATROPIUM BROMIDE [Suspect]
     Indication: TIC
     Route: 055
     Dates: start: 20130824, end: 20130826
  5. NACL [Concomitant]
     Indication: ELECTROLYTE IMBALANCE
     Route: 041
     Dates: start: 20130824, end: 20130826
  6. NACL [Concomitant]
     Indication: BODY TEMPERATURE FLUCTUATION
     Route: 041
     Dates: start: 20130824, end: 20130826
  7. NACL [Concomitant]
     Indication: FLUID IMBALANCE
     Route: 041
     Dates: start: 20130824, end: 20130826

REACTIONS (12)
  - Tremor [Recovered/Resolved]
  - Confusional state [Recovered/Resolved]
  - Hypotension [Recovered/Resolved]
  - Mental disorder [Recovered/Resolved]
  - Depressed level of consciousness [Recovered/Resolved]
  - Rash [Recovered/Resolved]
  - Pruritus [Recovered/Resolved]
  - Upper respiratory tract congestion [Recovered/Resolved]
  - Tachypnoea [Recovered/Resolved]
  - Breath sounds abnormal [Recovered/Resolved]
  - Rales [Recovered/Resolved]
  - Wheezing [Recovered/Resolved]
